FAERS Safety Report 7075397-7 (Version None)
Quarter: 2010Q4

REPORT INFORMATION
  Report Type: 
  Country: None (occurrence: None)
  Receive Date: 20101030
  Receipt Date: 20100907
  Transmission Date: 20110411
  Serious: No
  Sender: FDA-Public Use
  Company Number: US-WYE-H17406410

PATIENT
  Age: 89 Year
  Sex: Female

DRUGS (1)
  1. ADVIL PM [Suspect]
     Indication: BACK PAIN
     Dosage: UNKNOWN
     Route: 048

REACTIONS (1)
  - MALAISE [None]
